FAERS Safety Report 15670864 (Version 1)
Quarter: 2018Q4

REPORT INFORMATION
  Report Type: Spontaneous
  Country: US (occurrence: US)
  Receive Date: 20181128
  Receipt Date: 20181128
  Transmission Date: 20190205
  Serious: Yes (Life-Threatening, Hospitalization)
  Sender: FDA-Public Use
  Company Number: None

PATIENT
  Age: 45 Year
  Sex: Male
  Weight: 108 kg

DRUGS (1)
  1. RHINO 7 PLATINUM 5000 [Suspect]
     Active Substance: DIETARY SUPPLEMENT\HERBALS
     Indication: ERECTILE DYSFUNCTION
     Dosage: ?          QUANTITY:1 CAPSULE(S);?
     Route: 048
     Dates: start: 20170210, end: 20170422

REACTIONS (5)
  - Dyspnoea [None]
  - Oedema [None]
  - Product formulation issue [None]
  - Cardiac failure congestive [None]
  - Arrhythmia [None]

NARRATIVE: CASE EVENT DATE: 20170528
